FAERS Safety Report 5300050-7 (Version None)
Quarter: 2007Q2

REPORT INFORMATION
  Report Type: 
  Country: None (occurrence: None)
  Receive Date: 20070417
  Receipt Date: 20070406
  Transmission Date: 20071010
  Serious: Yes (Hospitalization, Other)
  Sender: FDA-Public Use
  Company Number: US-PFIZER INC-2006039909

PATIENT
  Sex: Male
  Weight: 83.9 kg

DRUGS (1)
  1. CELEBREX [Suspect]
     Indication: BACK PAIN
     Route: 048

REACTIONS (7)
  - ANXIETY [None]
  - CEREBROVASCULAR ACCIDENT [None]
  - CHEST PAIN [None]
  - DEPRESSION [None]
  - HEART INJURY [None]
  - INTRACARDIAC THROMBUS [None]
  - ISCHAEMIA [None]
